FAERS Safety Report 4982939-1 (Version None)
Quarter: 2006Q2

REPORT INFORMATION
  Report Type: 
  Country: None (occurrence: None)
  Receive Date: 20060420
  Receipt Date: 20060407
  Transmission Date: 20061013
  Serious: Yes (Other)
  Sender: FDA-Public Use
  Company Number: 2006007210

PATIENT
  Age: 62 Year
  Sex: Male

DRUGS (8)
  1. NORVASC [Suspect]
     Indication: HYPERTENSION
     Dosage: 10 MG (2.5 MG,2 IN 1 D), ORAL
     Route: 048
     Dates: start: 20050101, end: 20051101
  2. GLUCOTROL XL [Suspect]
     Indication: DIABETES MELLITUS
     Dosage: 5 MG (2.5 MG,2 IN 1 D), ORAL
     Route: 048
     Dates: start: 20050101
  3. ACCUPRIL [Concomitant]
  4. HYDROCHLOROTHIAZIDE [Concomitant]
  5. ANTIEPILEPTICS (ANTIEPILEPTICS) [Concomitant]
  6. CATAPRES [Suspect]
     Indication: HYPERTENSION
     Dosage: 0.2 MG (0.1 MG, 2 IN 1 D)
     Dates: start: 20050101
  7. CELEBREX [Suspect]
     Indication: ILL-DEFINED DISORDER
  8. FELDENE [Suspect]
     Indication: ILL-DEFINED DISORDER

REACTIONS (10)
  - ABDOMINAL PAIN UPPER [None]
  - BLOOD PRESSURE INCREASED [None]
  - DIABETES MELLITUS INADEQUATE CONTROL [None]
  - DRUG EFFECT DECREASED [None]
  - DRUG INEFFECTIVE [None]
  - ECONOMIC PROBLEM [None]
  - FEELING ABNORMAL [None]
  - NAUSEA [None]
  - NERVOUS SYSTEM DISORDER [None]
  - SPONDYLITIS [None]
